FAERS Safety Report 5528576-1 (Version None)
Quarter: 2007Q4

REPORT INFORMATION
  Report Type: 
  Country: None (occurrence: None)
  Receive Date: 20071123
  Receipt Date: 20071102
  Transmission Date: 20080405
  Serious: Yes (Death, Hospitalization)
  Sender: FDA-Public Use
  Company Number: 2007EU002425

PATIENT
  Age: 60 Year
  Sex: Female

DRUGS (5)
  1. PROGRAF [Suspect]
     Indication: IMMUNOSUPPRESSION
     Dosage: 2 MG, BID, ORAL
     Route: 048
     Dates: start: 20050701
  2. CERTICANE(EVEROLIMUS) [Suspect]
     Indication: IMMUNOSUPPRESSION
     Dosage: 0.5 MG, BID, ORAL
     Route: 048
     Dates: start: 20060814, end: 20070309
  3. GLYBURIDE [Concomitant]
  4. SEPTRA [Concomitant]
  5. AMBISOME [Concomitant]

REACTIONS (2)
  - PNEUMONITIS [None]
  - PULMONARY FIBROSIS [None]
